FAERS Safety Report 21141261 (Version 1)
Quarter: 2022Q3

REPORT INFORMATION
  Report Type: Spontaneous
  Country: US (occurrence: None)
  Receive Date: 20220727
  Receipt Date: 20220727
  Transmission Date: 20221027
  Serious: No
  Sender: FDA-Public Use
  Company Number: None

PATIENT
  Age: 71 Year
  Sex: Male

DRUGS (1)
  1. ABIRATERONE [Suspect]
     Active Substance: ABIRATERONE
     Dosage: FREQUENCY : DAILY;?
     Route: 048
     Dates: start: 20220717

REACTIONS (9)
  - Decreased appetite [None]
  - Dry mouth [None]
  - Retching [None]
  - Nausea [None]
  - Immobile [None]
  - Musculoskeletal stiffness [None]
  - Myalgia [None]
  - Muscular weakness [None]
  - Therapy interrupted [None]

NARRATIVE: CASE EVENT DATE: 20220721
